FAERS Safety Report 8250691-2 (Version None)
Quarter: 2012Q2

REPORT INFORMATION
  Report Type: 
  Country: None (occurrence: None)
  Receive Date: 20120402
  Receipt Date: 20120329
  Transmission Date: 20120825
  Serious: Yes (Other)
  Sender: FDA-Public Use
  Company Number: CA-PFIZER INC-2012049217

PATIENT
  Age: 34 Year
  Sex: Male
  Weight: 145.15 kg

DRUGS (9)
  1. FLUTICASONE [Concomitant]
     Route: 065
  2. HYDROCORTISONE [Concomitant]
     Route: 065
  3. NICORETTE [Suspect]
     Dosage: 2 INHALATIONS AT A TIME, ONE SLEEVE A DAY
     Route: 055
     Dates: start: 20100803
  4. BECLOMETHASONE AQUEOUS [Concomitant]
     Indication: MULTIPLE ALLERGIES
     Dosage: UNK
     Route: 065
  5. FLUTICASONE [Concomitant]
     Indication: MULTIPLE ALLERGIES
     Dosage: UNK
     Route: 065
  6. SYNTHROID [Concomitant]
     Indication: THYROID DISORDER
     Dosage: UNK
     Route: 065
  7. CITRAZINE [Concomitant]
     Indication: MULTIPLE ALLERGIES
     Dosage: UNK
     Route: 065
  8. LANSOPRAZOLE [Concomitant]
     Indication: DYSPEPSIA
     Dosage: UNK
     Route: 065
  9. LANSOPRAZOLE [Concomitant]
     Route: 065

REACTIONS (3)
  - ASTHMA [None]
  - DEPENDENCE [None]
  - INTENTIONAL DRUG MISUSE [None]
